FAERS Safety Report 7906100-3 (Version None)
Quarter: 2011Q4

REPORT INFORMATION
  Report Type: 
  Country: None (occurrence: None)
  Receive Date: 20111110
  Receipt Date: 20111104
  Transmission Date: 20120403
  Serious: Yes (Hospitalization, Other)
  Sender: FDA-Public Use
  Company Number: BR-ABBOTT-11P-020-0871729-00

PATIENT
  Sex: Female
  Weight: 70 kg

DRUGS (5)
  1. HUMIRA [Suspect]
     Indication: CROHN'S DISEASE
     Dosage: 4 INJECTIONS IN ONE DAY
     Route: 058
     Dates: start: 20090101
  2. HUMIRA [Suspect]
     Dosage: 2 INJECTIONS IN ONE DAY
     Route: 058
  3. PREDNISONE TAB [Concomitant]
     Indication: GASTROINTESTINAL INFLAMMATION
     Route: 048
     Dates: start: 20050101
  4. HUMIRA [Suspect]
     Route: 058
     Dates: end: 20100901
  5. METHOTREXATE [Concomitant]
     Indication: INFLAMMATION
     Route: 030
     Dates: start: 20050101

REACTIONS (2)
  - BILIARY COLIC [None]
  - GALLBLADDER PAIN [None]
